FAERS Safety Report 20007222 (Version 2)
Quarter: 2023Q2

REPORT INFORMATION
  Report Type: Report from Study
  Country: AU (occurrence: AU)
  Receive Date: 20211028
  Receipt Date: 20230405
  Transmission Date: 20230722
  Serious: Yes (Hospitalization)
  Sender: FDA-Public Use
  Company Number: AU-ABBVIE-21K-008-4132260-00

PATIENT
  Sex: Male

DRUGS (2)
  1. CARBIDOPA\LEVODOPA [Suspect]
     Active Substance: CARBIDOPA\LEVODOPA
     Indication: Parkinson^s disease
     Route: 050
     Dates: start: 20130510
  2. CARBIDOPA\LEVODOPA [Suspect]
     Active Substance: CARBIDOPA\LEVODOPA

REACTIONS (7)
  - Stoma site pain [Unknown]
  - Impulse-control disorder [Unknown]
  - Gastrointestinal disorder [Unknown]
  - Medical device removal [Unknown]
  - Device difficult to use [Unknown]
  - Device breakage [Not Recovered/Not Resolved]
  - Stoma site hypergranulation [Unknown]

NARRATIVE: CASE EVENT DATE: 20210101
